FAERS Safety Report 11984762 (Version 2)
Quarter: 2016Q3

REPORT INFORMATION
  Report Type: Spontaneous
  Country: US (occurrence: US)
  Receive Date: 20160201
  Receipt Date: 20160815
  Transmission Date: 20161109
  Serious: Yes (Other)
  Sender: FDA-Public Use
  Company Number: US-APOPHARMA USA, INC.-2016AP006033

PATIENT
  Age: 3 Month
  Sex: Male

DRUGS (7)
  1. CARBOPLATIN. [Concomitant]
     Active Substance: CARBOPLATIN
     Indication: CONGENITAL RETINOBLASTOMA
     Dosage: 50 MG, UNK
     Route: 013
  2. ALKERAN [Suspect]
     Active Substance: MELPHALAN
     Indication: CONGENITAL RETINOBLASTOMA
     Dosage: 0.4 MG/KG, UNK
     Route: 013
  3. NEOSYNEPHRINE [Concomitant]
     Active Substance: PHENYLEPHRINE HYDROCHLORIDE
     Indication: OEDEMA
     Route: 061
  4. NEOSYNEPHRINE [Concomitant]
     Active Substance: PHENYLEPHRINE HYDROCHLORIDE
     Indication: HYPERAEMIA
  5. TOPOTECAN [Concomitant]
     Active Substance: TOPOTECAN\TOPOTECAN HYDROCHLORIDE
     Indication: CONGENITAL RETINOBLASTOMA
     Dosage: 0.2 MG, UNK
     Route: 013
  6. NEOSYNEPHRINE [Concomitant]
     Active Substance: PHENYLEPHRINE HYDROCHLORIDE
     Indication: RASH
  7. EPINEPHRINE. [Concomitant]
     Active Substance: EPINEPHRINE
     Indication: VASOCONSTRICTION
     Route: 045

REACTIONS (3)
  - Neutropenia [Recovered/Resolved]
  - Madarosis [Unknown]
  - Bronchospasm [Recovered/Resolved]
